FAERS Safety Report 12862467 (Version 1)
Quarter: 2016Q4

REPORT INFORMATION
  Report Type: Spontaneous
  Country: US (occurrence: US)
  Receive Date: 20161019
  Receipt Date: 20161019
  Transmission Date: 20170207
  Serious: No
  Sender: FDA-Public Use
  Company Number: US-BIOGEN-2016BI00305702

PATIENT
  Sex: Female

DRUGS (1)
  1. TYSABRI [Suspect]
     Active Substance: NATALIZUMAB
     Indication: MULTIPLE SCLEROSIS
     Route: 065
     Dates: start: 20120404, end: 20130711

REACTIONS (5)
  - Coordination abnormal [Unknown]
  - Drug dose omission [Unknown]
  - Malaise [Unknown]
  - Diplopia [Unknown]
  - Drug administered to patient of inappropriate age [Recovered/Resolved]
